FAERS Safety Report 15851482 (Version 3)
Quarter: 2019Q3

REPORT INFORMATION
  Report Type: Spontaneous
  Country: PT (occurrence: PT)
  Receive Date: 20190122
  Receipt Date: 20190701
  Transmission Date: 20191004
  Serious: Yes (Hospitalization, Other)
  Sender: FDA-Public Use
  Company Number: PT-AUROBINDO-AUR-APL-2019-002164

PATIENT

DRUGS (2)
  1. LINAGLIPTIN [Suspect]
     Active Substance: LINAGLIPTIN
     Indication: TYPE 2 DIABETES MELLITUS
     Dosage: UNK
     Route: 065
  2. METFORMIN [Suspect]
     Active Substance: METFORMIN HYDROCHLORIDE
     Indication: TYPE 2 DIABETES MELLITUS
     Dosage: 2 GRAM PER DAY
     Route: 048

REACTIONS (8)
  - Contraindicated product administered [Unknown]
  - Leukopenia [Not Recovered/Not Resolved]
  - Blood lactate dehydrogenase increased [Recovering/Resolving]
  - Thrombotic microangiopathy [Recovering/Resolving]
  - Blood bilirubin increased [Recovering/Resolving]
  - Weight decreased [Unknown]
  - Vitamin B12 deficiency [Recovering/Resolving]
  - Thrombocytopenia [Recovering/Resolving]
